FAERS Safety Report 7864381-9 (Version None)
Quarter: 2011Q4

REPORT INFORMATION
  Report Type: 
  Country: None (occurrence: None)
  Receive Date: 20111028
  Receipt Date: 20111019
  Transmission Date: 20120403
  Serious: Yes (Hospitalization)
  Sender: FDA-Public Use
  Company Number: US-CELGENEUS-163-20785-11102137

PATIENT
  Age: 71 Year
  Sex: Male
  Weight: 86.1 kg

DRUGS (5)
  1. THALOMID [Suspect]
     Dosage: 100 MILLIGRAM
     Route: 048
     Dates: start: 20111012, end: 20111013
  2. MELPHALAN HYDROCHLORIDE [Suspect]
     Dosage: 9 MILLIGRAM/SQ. METER
     Route: 048
     Dates: start: 20100511, end: 20110403
  3. THALOMID [Suspect]
     Dosage: 100 MILLIGRAM
     Route: 048
     Dates: start: 20100511
  4. PREDNISONE [Suspect]
     Dosage: 100 MILLIGRAM
     Route: 048
     Dates: start: 20100511, end: 20110403
  5. ASPIRIN [Concomitant]
     Dosage: 325 MILLIGRAM
     Route: 048

REACTIONS (2)
  - SINUS BRADYCARDIA [None]
  - MEMORY IMPAIRMENT [None]
